FAERS Safety Report 7931100-7 (Version None)
Quarter: 2011Q4

REPORT INFORMATION
  Report Type: 
  Country: None (occurrence: None)
  Receive Date: 20111121
  Receipt Date: 20110715
  Transmission Date: 20120403
  Serious: No
  Sender: FDA-Public Use
  Company Number: US-AMGEN-USASP2011030106

PATIENT
  Age: 53 Year
  Sex: Female

DRUGS (3)
  1. METHOTREXATE [Concomitant]
     Dosage: UNK
  2. ARAVA [Concomitant]
     Dosage: UNK
     Dates: start: 20110526
  3. ENBREL [Suspect]
     Indication: RHEUMATOID ARTHRITIS
     Dosage: 50 MG, QWK
     Dates: start: 20100830

REACTIONS (7)
  - URINARY TRACT INFECTION [None]
  - PAIN IN EXTREMITY [None]
  - JOINT SWELLING [None]
  - DIZZINESS [None]
  - SINUSITIS [None]
  - HEART RATE INCREASED [None]
  - OEDEMA PERIPHERAL [None]
